FAERS Safety Report 13458534 (Version 1)
Quarter: 2017Q2

REPORT INFORMATION
  Report Type: Spontaneous
  Country: US (occurrence: US)
  Receive Date: 20170419
  Receipt Date: 20170419
  Transmission Date: 20170830
  Serious: Yes (Other)
  Sender: FDA-Public Use
  Company Number: US-BAYER-2017-074762

PATIENT
  Age: 91 Year
  Sex: Male
  Weight: 100 kg

DRUGS (3)
  1. APIXABAN [Concomitant]
     Active Substance: APIXABAN
     Dosage: 5 MG, UNK
  2. CLOPIDOGREL [Concomitant]
     Active Substance: CLOPIDOGREL BISULFATE
     Dosage: 75 MG, UNK
  3. BAYER ASPIRIN [Suspect]
     Active Substance: ASPIRIN
     Dosage: UNK

REACTIONS (1)
  - Muscle haemorrhage [Unknown]
